FAERS Safety Report 9001671 (Version 1)
Quarter: 2013Q1

REPORT INFORMATION
  Report Type: Spontaneous
  Country: IN (occurrence: IN)
  Receive Date: 20130107
  Receipt Date: 20130107
  Transmission Date: 20140127
  Serious: Yes (Hospitalization)
  Sender: FDA-Public Use
  Company Number: PHHY2013IN001143

PATIENT
  Age: 24 Year
  Sex: Male

DRUGS (10)
  1. ONDANSETRON [Suspect]
     Indication: GASTROENTERITIS
     Route: 048
  2. ONDANSETRON [Suspect]
     Indication: NAUSEA
  3. ORNIDAZOLE [Concomitant]
     Indication: GASTROENTERITIS
     Route: 048
  4. OFLOXACIN [Concomitant]
     Indication: GASTROENTERITIS
     Route: 048
  5. MULTIVITAMINS [Concomitant]
     Indication: GASTROENTERITIS
     Route: 048
  6. RIFAMPICIN [Concomitant]
     Indication: TUBERCULOSIS
  7. ISONIAZID [Concomitant]
     Indication: TUBERCULOSIS
  8. ETHAMBUTOL [Concomitant]
     Indication: TUBERCULOSIS
  9. PYRAZINAMIDE [Concomitant]
     Indication: TUBERCULOSIS
  10. COTRIMOXAZOLE [Concomitant]
     Indication: ANTIFUNGAL PROPHYLAXIS

REACTIONS (14)
  - Toxic epidermal necrolysis [Recovered/Resolved]
  - Scab [Recovered/Resolved]
  - Blister [Recovered/Resolved]
  - Skin haemorrhage [Recovered/Resolved]
  - Erythema [Recovered/Resolved]
  - Skin erosion [Recovered/Resolved]
  - Skin necrosis [Recovered/Resolved]
  - Nikolsky^s sign [Recovered/Resolved]
  - Eye inflammation [Recovered/Resolved]
  - Stomatitis [Recovered/Resolved]
  - Nasal inflammation [Recovered/Resolved]
  - Genital tract inflammation [Recovered/Resolved]
  - Corneal opacity [Recovered/Resolved with Sequelae]
  - Accidental exposure to product [Unknown]
